FAERS Safety Report 10267832 (Version 1)
Quarter: 2014Q2

REPORT INFORMATION
  Report Type: Spontaneous
  Country: US (occurrence: US)
  Receive Date: 20140630
  Receipt Date: 20140630
  Transmission Date: 20141212
  Serious: No
  Sender: FDA-Public Use
  Company Number: US-GLAXOSMITHKLINE-A1057687A

PATIENT
  Age: 27 Year
  Sex: Female

DRUGS (3)
  1. ZANTAC [Suspect]
     Indication: GASTROENTERITIS
     Route: 065
     Dates: start: 20140116, end: 20140119
  2. RANITIDINE [Suspect]
     Indication: DYSPEPSIA
     Dosage: 150MG TWICE PER DAY
     Route: 048
     Dates: start: 201312
  3. PRENATAL VITAMINS [Concomitant]

REACTIONS (4)
  - Drug screen positive [Unknown]
  - Gastroenteritis viral [Recovered/Resolved]
  - Live birth [Unknown]
  - Exposure during pregnancy [Unknown]
